FAERS Safety Report 12769632 (Version 1)
Quarter: 2016Q3

REPORT INFORMATION
  Report Type: Spontaneous
  Country: US (occurrence: US)
  Receive Date: 20160922
  Receipt Date: 20160922
  Transmission Date: 20161109
  Serious: No
  Sender: FDA-Public Use
  Company Number: US-ASTRAZENECA-2016SE99818

PATIENT
  Age: 72 Year
  Sex: Female
  Weight: 72.1 kg

DRUGS (4)
  1. ALBUTEROL. [Concomitant]
     Active Substance: ALBUTEROL
     Indication: ASTHMA
     Route: 055
     Dates: start: 2001
  2. SYMBICORT [Suspect]
     Active Substance: BUDESONIDE\FORMOTEROL FUMARATE DIHYDRATE
     Indication: ASTHMA
     Dosage: 80/4.5 TWO PUFFS TWICE PER DAY
     Route: 055
     Dates: start: 20160912
  3. VENTOLIN [Concomitant]
     Active Substance: ALBUTEROL SULFATE
     Indication: ASTHMA
     Dosage: 1
     Route: 055
     Dates: start: 2001
  4. DIOVAN [Concomitant]
     Active Substance: VALSARTAN
     Indication: HYPERTENSION
     Route: 048
     Dates: start: 2001

REACTIONS (5)
  - Nervousness [Unknown]
  - Intentional product misuse [Unknown]
  - Hypotension [Unknown]
  - Abdominal distension [Unknown]
  - Ear pain [Unknown]

NARRATIVE: CASE EVENT DATE: 2016
